FAERS Safety Report 6019670-X (Version None)
Quarter: 2008Q4

REPORT INFORMATION
  Report Type: 
  Country: None (occurrence: None)
  Receive Date: 20081224
  Receipt Date: 20081217
  Transmission Date: 20090506
  Serious: Yes (Death, Hospitalization)
  Sender: FDA-Public Use
  Company Number: EC-AMGEN-US324734

PATIENT
  Sex: Male
  Weight: 94 kg

DRUGS (7)
  1. NEUPOGEN [Suspect]
     Indication: CHEMOTHERAPY
     Route: 058
     Dates: start: 20081208, end: 20081213
  2. IFOSFAMIDE [Concomitant]
     Route: 042
     Dates: start: 20081202, end: 20081207
  3. UROMITEXAN [Concomitant]
     Route: 042
     Dates: start: 20081202, end: 20081207
  4. CISPLATIN [Concomitant]
     Route: 042
     Dates: start: 20081202, end: 20081207
  5. ETOPOSIDE [Concomitant]
     Route: 042
     Dates: start: 20081202, end: 20081207
  6. DEXAMETHASONE [Concomitant]
     Route: 042
     Dates: start: 20081202, end: 20081202
  7. KYTRIL [Concomitant]
     Route: 042
     Dates: start: 20081202, end: 20081202

REACTIONS (3)
  - DRUG INEFFECTIVE [None]
  - HYPOTENSION [None]
  - NEUTROPENIA [None]
